FAERS Safety Report 20038411 (Version 1)
Quarter: 2021Q4

REPORT INFORMATION
  Report Type: Spontaneous
  Country: DE (occurrence: None)
  Receive Date: 20211105
  Receipt Date: 20211105
  Transmission Date: 20220303
  Serious: Yes (Hospitalization, Other)
  Sender: FDA-Public Use
  Company Number: 2021A792325

PATIENT
  Age: 80 Year
  Sex: Male

DRUGS (10)
  1. SYMBICORT [Suspect]
     Active Substance: BUDESONIDE\FORMOTEROL FUMARATE DIHYDRATE
     Dosage: UNKNOWN DOSE TWO TIMES A DAY
     Route: 055
  2. RAMIPRIL [Concomitant]
     Active Substance: RAMIPRIL
     Dosage: UNKNOWN DOSE TWO TIMES A DAY
     Route: 065
  3. ASPIRIN [Concomitant]
     Active Substance: ASPIRIN
     Dosage: UNKNOWN DOSE EVERY DAY
     Route: 065
  4. ASPIRIN [Concomitant]
     Active Substance: ASPIRIN
     Dosage: UNKNOWN DOSE EVERY DAY
     Route: 065
  5. ASPIRIN [Concomitant]
     Active Substance: ASPIRIN
     Dosage: UNKNOWN DOSE EVERY DAY
     Route: 065
  6. CARVEDILOL [Concomitant]
     Active Substance: CARVEDILOL
     Dosage: UNKNOWN DOSE EVERY DAY
     Route: 065
  7. SPIRONOLACTONE [Concomitant]
     Active Substance: SPIRONOLACTONE
     Dosage: UNKNOWN DOSE EVERY DAY
     Route: 065
  8. LASIX [Concomitant]
     Active Substance: FUROSEMIDE
     Dosage: UNKNOWN DOSE TWO TIMES A DAY
     Route: 042
  9. DAPAGLIFLOZIN [Concomitant]
     Active Substance: DAPAGLIFLOZIN
     Dosage: UNKNOWN DOSE EVERY DAY
     Route: 065
  10. TORSEMIDE [Concomitant]
     Active Substance: TORSEMIDE
     Dosage: UNKNOWN DOSE EVERY DAY
     Route: 065

REACTIONS (10)
  - Dyspnoea [Unknown]
  - Ejection fraction [Unknown]
  - Mitral valve incompetence [Unknown]
  - Cardiac failure congestive [Unknown]
  - Cardiomegaly [Unknown]
  - Pulmonary oedema [Unknown]
  - Pleural effusion [Unknown]
  - Blood pressure systolic increased [Unknown]
  - Proteinuria [Unknown]
  - Brain natriuretic peptide increased [Unknown]
